FAERS Safety Report 14392530 (Version 2)
Quarter: 2018Q1

REPORT INFORMATION
  Report Type: Spontaneous
  Country: JP (occurrence: JP)
  Receive Date: 20180116
  Receipt Date: 20180122
  Transmission Date: 20180509
  Serious: Yes (Death, Hospitalization, Other)
  Sender: FDA-Public Use
  Company Number: JP-B.I. PHARMACEUTICALS,INC./RIDGEFIELD-2018-NB-000068

PATIENT
  Age: 64 Year
  Sex: Male
  Weight: 45 kg

DRUGS (6)
  1. DROXIDOPA [Concomitant]
     Active Substance: DROXIDOPA
     Route: 048
  2. LEVODOPA [Concomitant]
     Active Substance: LEVODOPA
     Route: 048
  3. LEVODOPA [Concomitant]
     Active Substance: LEVODOPA
     Indication: PRODUCT USED FOR UNKNOWN INDICATION
     Route: 048
  4. DROXIDOPA [Concomitant]
     Active Substance: DROXIDOPA
     Indication: PRODUCT USED FOR UNKNOWN INDICATION
     Route: 048
  5. BI-SIFROL [Suspect]
     Active Substance: PRAMIPEXOLE
     Indication: PARKINSON^S DISEASE
     Route: 048
  6. BI-SIFROL [Suspect]
     Active Substance: PRAMIPEXOLE
     Dosage: DOSE DECREASED
     Route: 048

REACTIONS (9)
  - Coagulopathy [Unknown]
  - Gastrointestinal necrosis [Unknown]
  - Pulmonary oedema [Unknown]
  - Dysphagia [Unknown]
  - Volvulus [Unknown]
  - Septic shock [Fatal]
  - Intestinal ischaemia [Unknown]
  - Pneumonia aspiration [Unknown]
  - Ileus [Unknown]
